FAERS Safety Report 19681967 (Version 1)
Quarter: 2021Q3

REPORT INFORMATION
  Report Type: Spontaneous
  Country: US (occurrence: US)
  Receive Date: 20210810
  Receipt Date: 20210810
  Transmission Date: 20211014
  Serious: No
  Sender: FDA-Public Use
  Company Number: US-AMNEAL PHARMACEUTICALS-2021-AMRX-01139

PATIENT

DRUGS (1)
  1. TRAMADOL HYDROCHLORIDE. [Suspect]
     Active Substance: TRAMADOL HYDROCHLORIDE
     Indication: PELVIC PAIN
     Dosage: UNK
     Route: 065

REACTIONS (5)
  - Product substitution issue [Unknown]
  - Drug ineffective [Unknown]
  - Cognitive disorder [Unknown]
  - Pain [Unknown]
  - General physical health deterioration [Not Recovered/Not Resolved]
